FAERS Safety Report 17499791 (Version 1)
Quarter: 2020Q1

REPORT INFORMATION
  Report Type: Report from Study
  Country: ES (occurrence: ES)
  Receive Date: 20200305
  Receipt Date: 20200305
  Transmission Date: 20200409
  Serious: Yes (Other)
  Sender: FDA-Public Use
  Company Number: ES-GLAXOSMITHKLINE-ES2020GSK034846

PATIENT
  Age: 68 Year
  Sex: Female
  Weight: 48.3 kg

DRUGS (6)
  1. BLINDED ATEZOLIZUMAB [Suspect]
     Active Substance: ATEZOLIZUMAB
     Indication: OVARIAN CANCER
     Dosage: 840 MG
     Dates: start: 20200115, end: 20200219
  2. BLINDED DOXORUBICIN [Suspect]
     Active Substance: DOXORUBICIN
     Indication: OVARIAN CANCER
     Dosage: 840 MG
     Dates: start: 20200115, end: 20200219
  3. BLINDED PLACEBO [Suspect]
     Active Substance: INVESTIGATIONAL PRODUCT
     Indication: OVARIAN CANCER
     Dosage: 840 MG
     Dates: start: 20200115, end: 20200219
  4. PEGYLATED LIPOSOMAL DOXORUBICIN [Suspect]
     Active Substance: DOXORUBICIN
     Indication: OVARIAN CANCER
     Dosage: 30 MG/M2
     Route: 042
     Dates: start: 20200115, end: 20200219
  5. BLINDED NIRAPARIB [Suspect]
     Active Substance: NIRAPARIB
     Indication: OVARIAN CANCER
     Dosage: 840 MG
     Dates: start: 20200115, end: 20200219
  6. CARBOPLATIN. [Suspect]
     Active Substance: CARBOPLATIN
     Indication: OVARIAN CANCER
     Dosage: AUC 5
     Route: 042
     Dates: start: 20200115, end: 20200219

REACTIONS (1)
  - Hyperthyroidism [Not Recovered/Not Resolved]

NARRATIVE: CASE EVENT DATE: 20200219
